FAERS Safety Report 4856087-5 (Version None)
Quarter: 2005Q4

REPORT INFORMATION
  Report Type: 
  Country: None (occurrence: None)
  Receive Date: 20051216
  Receipt Date: 20030605
  Transmission Date: 20060501
  Serious: Yes (Hospitalization, Disabling, Other)
  Sender: FDA-Public Use
  Company Number: US-MERCK-0306USA00719

PATIENT
  Age: 50 Year
  Sex: Male
  Weight: 86 kg

DRUGS (6)
  1. VIOXX [Suspect]
     Indication: ARTHRITIS
     Route: 048
     Dates: start: 19991108, end: 20020403
  2. VIOXX [Suspect]
     Indication: BACK PAIN
     Route: 048
     Dates: start: 19991108, end: 20020403
  3. HYDRODIURIL [Concomitant]
     Route: 048
  4. NORVASC [Concomitant]
     Route: 065
  5. VICODIN ES [Concomitant]
     Route: 065
  6. TYLENOL [Concomitant]
     Route: 065

REACTIONS (56)
  - ABDOMINAL PAIN [None]
  - ABSCESS [None]
  - ANAEMIA [None]
  - ANGINA UNSTABLE [None]
  - ANXIETY [None]
  - ATELECTASIS [None]
  - BACTERIAL INFECTION [None]
  - BARRETT'S OESOPHAGUS [None]
  - BLOOD CREATININE INCREASED [None]
  - CATARACT [None]
  - CERVICOBRACHIAL SYNDROME [None]
  - CHEST PAIN [None]
  - CHOLELITHIASIS [None]
  - CONVULSION [None]
  - CORNEAL SCAR [None]
  - CORONARY ARTERY STENOSIS [None]
  - DEPRESSION [None]
  - DERMATITIS CONTACT [None]
  - DISABILITY [None]
  - DIZZINESS [None]
  - DYSURIA [None]
  - GASTRITIS [None]
  - HEPATIC ENZYME INCREASED [None]
  - HYPERCHOLESTEROLAEMIA [None]
  - HYPERLIPIDAEMIA [None]
  - HYPERSENSITIVITY [None]
  - HYPERTENSION [None]
  - INTERVERTEBRAL DISCITIS [None]
  - LIPASE INCREASED [None]
  - LIPOMA [None]
  - LYMPHADENOPATHY [None]
  - MIGRAINE [None]
  - MYOCARDIAL INFARCTION [None]
  - OEDEMA PERIPHERAL [None]
  - OESOPHAGITIS [None]
  - OSTEOARTHRITIS [None]
  - OSTEOMYELITIS [None]
  - PAIN [None]
  - PALPITATIONS [None]
  - PLEURAL FIBROSIS [None]
  - POLYNEUROPATHY [None]
  - PYREXIA [None]
  - RECTAL HAEMORRHAGE [None]
  - RED BLOOD CELL SEDIMENTATION RATE INCREASED [None]
  - RENAL FAILURE ACUTE [None]
  - ROTATOR CUFF SYNDROME [None]
  - SPONDYLOLISTHESIS [None]
  - SUBCUTANEOUS ABSCESS [None]
  - SUICIDAL IDEATION [None]
  - THERAPEUTIC RESPONSE DECREASED [None]
  - TRICUSPID VALVE INCOMPETENCE [None]
  - UPPER RESPIRATORY TRACT INFECTION [None]
  - VENTRICULAR HYPERTROPHY [None]
  - WEIGHT DECREASED [None]
  - WHITE BLOOD CELL COUNT INCREASED [None]
  - WOUND INFECTION STAPHYLOCOCCAL [None]
